FAERS Safety Report 14454181 (Version 3)
Quarter: 2019Q2

REPORT INFORMATION
  Report Type: Spontaneous
  Country: IN (occurrence: IN)
  Receive Date: 20180129
  Receipt Date: 20190408
  Transmission Date: 20190711
  Serious: Yes (Other)
  Sender: FDA-Public Use
  Company Number: IN-PFIZER INC-2018033710

PATIENT
  Sex: Female

DRUGS (1)
  1. AROMASIN [Suspect]
     Active Substance: EXEMESTANE
     Dosage: 25 MG, UNK
     Route: 048
     Dates: start: 2012

REACTIONS (5)
  - Bone disorder [Recovered/Resolved]
  - Eye injury [Unknown]
  - Limb injury [Unknown]
  - Visual impairment [Unknown]
  - Emotional distress [Unknown]
